FAERS Safety Report 9525801 (Version 2)
Quarter: 2013Q3

REPORT INFORMATION
  Report Type: Spontaneous
  Country: US (occurrence: US)
  Receive Date: 20130916
  Receipt Date: 20130924
  Transmission Date: 20140515
  Serious: Yes (Other)
  Sender: FDA-Public Use
  Company Number: US-BIOGENIDEC-2013BI088520

PATIENT
  Age: 55 Year
  Sex: Male

DRUGS (1)
  1. AVONEX [Suspect]
     Indication: MULTIPLE SCLEROSIS
     Route: 030
     Dates: start: 20060522

REACTIONS (7)
  - Tendon rupture [Unknown]
  - Intervertebral disc protrusion [Unknown]
  - Loss of control of legs [Unknown]
  - Injury [Recovered/Resolved]
  - Fall [Recovered/Resolved]
  - Mobility decreased [Unknown]
  - Pain [Unknown]
